FAERS Safety Report 23665744 (Version 1)
Quarter: 2024Q1

REPORT INFORMATION
  Report Type: Other
  Country: ES (occurrence: ES)
  Receive Date: 20240323
  Receipt Date: 20240323
  Transmission Date: 20240410
  Serious: Yes (Other)
  Sender: FDA-Public Use
  Company Number: None

PATIENT

DRUGS (5)
  1. OMEPRAZOLE [Suspect]
     Active Substance: OMEPRAZOLE
     Indication: Prophylaxis
     Dosage: 1-0-0
     Route: 048
     Dates: start: 20230811, end: 20230818
  2. ACETAMINOPHEN [Suspect]
     Active Substance: ACETAMINOPHEN
     Indication: Analgesic therapy
     Dosage: 1-1-1,1 GRAM TID
     Route: 048
     Dates: start: 20230808, end: 20230818
  3. AMOXICILLIN\CLAVULANIC ACID [Suspect]
     Active Substance: AMOXICILLIN\CLAVULANIC ACID
     Indication: Pneumonia
     Dosage: UNK
     Route: 042
     Dates: start: 20230809, end: 20230817
  4. BEMIPARIN [Suspect]
     Active Substance: BEMIPARIN
     Indication: Prophylaxis
     Dosage: 0-0-1
     Route: 058
     Dates: start: 20230811, end: 20230818
  5. METAMIZOLE [Suspect]
     Active Substance: METAMIZOLE
     Indication: Analgesic therapy
     Dosage: 2 GRAM TID
     Route: 042
     Dates: start: 20230809, end: 20230816

REACTIONS (1)
  - Hepatic cytolysis [Recovered/Resolved]

NARRATIVE: CASE EVENT DATE: 20230814
